FAERS Safety Report 8780344 (Version 1)
Quarter: 2012Q4

REPORT INFORMATION
  Report Type: Spontaneous
  Country: US (occurrence: None)
  Receive Date: 20120905
  Receipt Date: 20120905
  Transmission Date: 20130627
  Serious: No
  Sender: FDA-Public Use
  Company Number: None

PATIENT
  Age: 70 Year
  Sex: Male
  Weight: 50.35 kg

DRUGS (1)
  1. DALIRESP [Suspect]
     Route: 048
     Dates: start: 20120731, end: 20120803

REACTIONS (9)
  - Anxiety [None]
  - Mood altered [None]
  - Screaming [None]
  - Trance [None]
  - Insomnia [None]
  - Suicidal ideation [None]
  - Tremor [None]
  - Unresponsive to stimuli [None]
  - Body temperature decreased [None]
